FAERS Safety Report 6021088-0 (Version None)
Quarter: 2008Q4

REPORT INFORMATION
  Report Type: 
  Country: None (occurrence: None)
  Receive Date: 20081229
  Receipt Date: 20081217
  Transmission Date: 20090506
  Serious: Yes (Other)
  Sender: FDA-Public Use
  Company Number: US-PFIZER INC-2007104987

PATIENT
  Sex: Female
  Weight: 70.3 kg

DRUGS (4)
  1. DILANTIN [Suspect]
     Route: 048
     Dates: start: 19910101
  2. SYNTHROID [Interacting]
     Indication: THYROIDECTOMY
  3. REMERON [Concomitant]
  4. TRAZODONE [Concomitant]

REACTIONS (10)
  - ANTINUCLEAR ANTIBODY INCREASED [None]
  - COGNITIVE DISORDER [None]
  - CONVULSION [None]
  - DEPRESSION [None]
  - DRUG INEFFECTIVE [None]
  - DRUG INTERACTION [None]
  - DRUG LEVEL DECREASED [None]
  - HYPOTHYROIDISM [None]
  - INSOMNIA [None]
  - WEIGHT INCREASED [None]
